FAERS Safety Report 21360869 (Version 2)
Quarter: 2022Q4

REPORT INFORMATION
  Report Type: Spontaneous
  Country: US (occurrence: US)
  Receive Date: 20220921
  Receipt Date: 20221010
  Transmission Date: 20230112
  Serious: No
  Sender: FDA-Public Use
  Company Number: US-IDORSIA-001249-2022-US

PATIENT
  Age: 56 Year
  Sex: Female

DRUGS (4)
  1. QUVIVIQ [Suspect]
     Active Substance: DARIDOREXANT
     Indication: Insomnia
     Dosage: 50 MG, QD
     Route: 048
     Dates: start: 20220910, end: 20220911
  2. FLUOXETINE [Concomitant]
     Active Substance: FLUOXETINE HYDROCHLORIDE
     Dosage: 20 MG (2 PER DAY IN MORNING)
  3. SIMVASTATIN [Concomitant]
     Active Substance: SIMVASTATIN
     Dosage: 10 MG, QD AT BEDTUNE
  4. MELOXICAM [Concomitant]
     Active Substance: MELOXICAM
     Dosage: 1 DOSAGE FORM, QD AT BED TIME

REACTIONS (3)
  - Feeling abnormal [Recovered/Resolved]
  - Wrong technique in product usage process [Recovered/Resolved]
  - Sleep paralysis [Recovered/Resolved]

NARRATIVE: CASE EVENT DATE: 20220910
